FAERS Safety Report 18146111 (Version 1)
Quarter: 2020Q3

REPORT INFORMATION
  Report Type: Spontaneous
  Country: IT (occurrence: IT)
  Receive Date: 20200813
  Receipt Date: 20200813
  Transmission Date: 20201103
  Serious: Yes (Hospitalization)
  Sender: FDA-Public Use
  Company Number: IT-PFIZER INC-2020305771

PATIENT
  Age: 62 Year
  Sex: Male

DRUGS (2)
  1. LEVOXACIN [Suspect]
     Active Substance: LEVOFLOXACIN
     Dosage: 8 DF, SINGLE, TOTAL
     Route: 048
     Dates: start: 20200727, end: 20200727
  2. TAVOR (LORAZEPAM) [Suspect]
     Active Substance: LORAZEPAM
     Dosage: 37 MG, TOTAL
     Route: 048
     Dates: start: 20200727, end: 20200727

REACTIONS (4)
  - Suicide attempt [Unknown]
  - Depressed level of consciousness [Unknown]
  - Intentional overdose [Unknown]
  - Tachycardia [Unknown]

NARRATIVE: CASE EVENT DATE: 20200727
